FAERS Safety Report 6297150-4 (Version None)
Quarter: 2009Q3

REPORT INFORMATION
  Report Type: 
  Country: None (occurrence: None)
  Receive Date: 20090805
  Receipt Date: 20070626
  Transmission Date: 20100115
  Serious: Yes (Other)
  Sender: FDA-Public Use
  Company Number: US-ASTRAZENECA-2006UW21456

PATIENT
  Age: 46 Year
  Sex: Female
  Weight: 108.9 kg

DRUGS (20)
  1. SEROQUEL [Suspect]
     Indication: DEPRESSION
     Route: 048
     Dates: start: 20010601
  2. SEROQUEL [Suspect]
     Dosage: STRENGTH 25 MG, 200 MG  DOSE 25 MG TO 800 MG.
     Route: 048
     Dates: start: 20040518
  3. ABILIFY [Concomitant]
     Dates: start: 20050101
  4. CLOZARIL [Concomitant]
     Dates: start: 20050101
  5. DILAUDID [Concomitant]
     Indication: PAIN
     Route: 042
  6. METFORMIN HCL [Concomitant]
  7. FLUOXETINE HCL [Concomitant]
  8. FLUOXETINE HCL [Concomitant]
     Dosage: STRENGTH 20 MG, 40 MG
  9. CLONAZEPAM [Concomitant]
     Dosage: STRENGTH 0.5 MG, 1 MG, 2 MG
  10. IBUPROFEN [Concomitant]
  11. MEDROXYPROGESTERONE [Concomitant]
  12. FUROSEMIDE [Concomitant]
  13. GLYBURIDE [Concomitant]
  14. AMOXICILLIN [Concomitant]
  15. LITHIUM CARBONATE [Concomitant]
     Route: 048
  16. TEGRETOL [Concomitant]
     Route: 048
  17. RISPERDAL [Concomitant]
     Route: 048
  18. ZOLOFT [Concomitant]
     Route: 048
  19. LEPROX [Concomitant]
     Indication: SLEEP DISORDER
     Route: 048
  20. LEPROX [Concomitant]
     Indication: AFFECTIVE DISORDER
     Route: 048

REACTIONS (3)
  - DIABETES MELLITUS [None]
  - DIABETIC RETINOPATHY [None]
  - TYPE 2 DIABETES MELLITUS [None]
